FAERS Safety Report 4995245-6 (Version None)
Quarter: 2006Q2

REPORT INFORMATION
  Report Type: 
  Country: None (occurrence: None)
  Receive Date: 20060508
  Receipt Date: 20060117
  Transmission Date: 20061013
  Serious: Yes (Hospitalization)
  Sender: FDA-Public Use
  Company Number: US-MERCK-0601USA02158

PATIENT
  Age: 64 Year
  Sex: Male
  Weight: 93 kg

DRUGS (13)
  1. VIOXX [Suspect]
     Indication: OSTEOARTHRITIS
     Route: 048
     Dates: start: 20010716, end: 20040903
  2. VIOXX [Suspect]
     Route: 048
     Dates: start: 20010716, end: 20040903
  3. VIOXX [Suspect]
     Indication: FIBROMYALGIA
     Route: 048
     Dates: start: 20010716, end: 20040903
  4. VIOXX [Suspect]
     Route: 048
     Dates: start: 20010716, end: 20040903
  5. ALTACE [Concomitant]
     Indication: HYPERTENSION
     Route: 065
     Dates: start: 20041101
  6. LIPITOR [Concomitant]
     Indication: BLOOD CHOLESTEROL
     Route: 065
     Dates: start: 20030101, end: 20030401
  7. ZYPREXA [Concomitant]
     Indication: SCHIZOPHRENIA
     Route: 065
     Dates: start: 20020701, end: 20030401
  8. NITROQUICK [Concomitant]
     Indication: CARDIAC DISORDER
     Route: 065
     Dates: start: 20041201
  9. ASPIRIN [Concomitant]
     Indication: CARDIAC DISORDER
     Route: 065
     Dates: start: 20041001
  10. EFFEXOR [Concomitant]
     Indication: ANXIETY
     Route: 065
     Dates: start: 20010101
  11. WELLBUTRIN [Concomitant]
     Indication: DEPRESSION
     Route: 065
     Dates: start: 20030701, end: 20031001
  12. KLONOPIN [Concomitant]
     Route: 065
     Dates: start: 20010101
  13. ENDOCET [Concomitant]
     Route: 065
     Dates: start: 20020126

REACTIONS (8)
  - ANHEDONIA [None]
  - CEREBROVASCULAR ACCIDENT [None]
  - EMOTIONAL DISTRESS [None]
  - HYPERTENSION [None]
  - KNEE OPERATION [None]
  - MENTAL IMPAIRMENT [None]
  - PAIN [None]
  - ROTATOR CUFF REPAIR [None]
